FAERS Safety Report 25918255 (Version 1)
Quarter: 2025Q4

REPORT INFORMATION
  Report Type: Spontaneous
  Country: CN (occurrence: CN)
  Receive Date: 20251014
  Receipt Date: 20251014
  Transmission Date: 20260117
  Serious: Yes (Other)
  Sender: MACLEODS
  Company Number: CN-MACLEODS PHARMA-MAC2025055734

PATIENT

DRUGS (2)
  1. LINEZOLID [Suspect]
     Active Substance: LINEZOLID
     Indication: Antibiotic therapy
     Route: 042
  2. Cefperazone-sulbactam [Concomitant]
     Indication: Product used for unknown indication
     Route: 065

REACTIONS (3)
  - Urticaria [Recovered/Resolved]
  - Eosinophilia [Recovered/Resolved]
  - Angioedema [Recovered/Resolved]
